FAERS Safety Report 4566312-6 (Version None)
Quarter: 2005Q1

REPORT INFORMATION
  Report Type: 
  Country: None (occurrence: None)
  Receive Date: 20050126
  Receipt Date: 20050126
  Transmission Date: 20050727
  Serious: Yes (Other)
  Sender: FDA-Public Use
  Company Number: None

PATIENT
  Age: 26 Year
  Sex: Female
  Weight: 54.4316 kg

DRUGS (2)
  1. PAXIL [Suspect]
     Indication: DEPRESSION
     Dosage: 20 MG   PER DAY   ORAL
     Route: 048
     Dates: start: 20030106, end: 20040415
  2. PAXIL [Suspect]

REACTIONS (7)
  - ALTERED VISUAL DEPTH PERCEPTION [None]
  - DIZZINESS [None]
  - DRUG WITHDRAWAL SYNDROME [None]
  - HEADACHE [None]
  - MIGRAINE [None]
  - VERTIGO [None]
  - VISUAL DISTURBANCE [None]
